FAERS Safety Report 7064451-1 (Version None)
Quarter: 2010Q4

REPORT INFORMATION
  Report Type: 
  Country: None (occurrence: None)
  Receive Date: 20101027
  Receipt Date: 20101022
  Transmission Date: 20110411
  Serious: Yes (Death, Hospitalization)
  Sender: FDA-Public Use
  Company Number: PHHY2010FR43723

PATIENT
  Sex: Male

DRUGS (5)
  1. EXELON [Suspect]
     Indication: DEMENTIA ALZHEIMER'S TYPE
     Dosage: 4.6 MG DAILY
     Route: 062
     Dates: start: 20100610, end: 20100614
  2. TRIATEC [Concomitant]
     Dosage: 2.5 MG, QD
  3. CARDENSIEL [Concomitant]
     Dosage: 1.25 MG, QD
  4. MIANSERIN [Concomitant]
     Dosage: 30 MG, QD
  5. RISPERDAL [Concomitant]
     Dosage: 0.5 UNK, TID

REACTIONS (13)
  - ABNORMAL BEHAVIOUR [None]
  - AGGRESSION [None]
  - BLOOD ALKALINE PHOSPHATASE INCREASED [None]
  - EXTRAPYRAMIDAL DISORDER [None]
  - GAIT DISTURBANCE [None]
  - GAMMA-GLUTAMYLTRANSFERASE INCREASED [None]
  - LUNG INFECTION [None]
  - OXYGEN SATURATION DECREASED [None]
  - PLATELET COUNT DECREASED [None]
  - PULMONARY CONGESTION [None]
  - RALES [None]
  - RESPIRATORY DISORDER [None]
  - TACHYPNOEA [None]
